FAERS Safety Report 18628964 (Version 1)
Quarter: 2020Q4

REPORT INFORMATION
  Report Type: Spontaneous
  Country: SE (occurrence: SE)
  Receive Date: 20201217
  Receipt Date: 20201217
  Transmission Date: 20210114
  Serious: Yes (Disabling)
  Sender: FDA-Public Use
  Company Number: None

PATIENT
  Age: 42 Year
  Sex: Male
  Weight: 73 kg

DRUGS (2)
  1. PROPECIA [Suspect]
     Active Substance: FINASTERIDE
     Indication: ANDROGENETIC ALOPECIA
     Route: 048
     Dates: start: 20190201, end: 20200413
  2. FINASTERIDE. [Suspect]
     Active Substance: FINASTERIDE

REACTIONS (9)
  - Premature ejaculation [None]
  - Varicose vein [None]
  - Impaired healing [None]
  - Skin disorder [None]
  - Urine abnormality [None]
  - Skin discolouration [None]
  - Dysphonia [None]
  - Photosensitivity reaction [None]
  - Penis disorder [None]

NARRATIVE: CASE EVENT DATE: 20190413
